FAERS Safety Report 8381365-5 (Version None)
Quarter: 2012Q2

REPORT INFORMATION
  Report Type: 
  Country: None (occurrence: None)
  Receive Date: 20120523
  Receipt Date: 20120509
  Transmission Date: 20120825
  Serious: Yes (Other)
  Sender: FDA-Public Use
  Company Number: FR-ELI_LILLY_AND_COMPANY-FR201205004517

PATIENT

DRUGS (2)
  1. CYMBALTA [Suspect]
     Dosage: 60 MG, QD
     Route: 064
  2. ANXIOLYTICS [Concomitant]
     Indication: DEPRESSION
     Dosage: UNK, UNKNOWN
     Route: 064

REACTIONS (2)
  - BRADYCARDIA FOETAL [None]
  - FOETAL EXPOSURE DURING PREGNANCY [None]
